FAERS Safety Report 4875684-4 (Version None)
Quarter: 2006Q1

REPORT INFORMATION
  Report Type: 
  Country: None (occurrence: None)
  Receive Date: 20060105
  Receipt Date: 20051222
  Transmission Date: 20060701
  Serious: Yes (Hospitalization)
  Sender: FDA-Public Use
  Company Number: 2005P1000628

PATIENT
  Age: 61 Year
  Sex: Male
  Weight: 74.4 kg

DRUGS (11)
  1. RETEPLASE (RETEPLASE) [Suspect]
     Indication: ACUTE MYOCARDIAL INFARCTION
     Dosage: IV
     Route: 042
     Dates: start: 20050712
  2. ABCIXIMAB (ABCIXIMAB) [Suspect]
     Indication: ACUTE MYOCARDIAL INFARCTION
     Dosage: IV
     Route: 042
     Dates: start: 20050712
  3. ASPIRIN [Concomitant]
  4. GLYCERYL TRINITRATE [Concomitant]
  5. BETAHISTINE [Concomitant]
  6. LEVOTHYROXINE SODIUM [Concomitant]
  7. PANTOPRAZOLE [Concomitant]
  8. CLOPIDOGREL [Concomitant]
  9. BISOPROLOL [Concomitant]
  10. ATORVASTATIN [Concomitant]
  11. PERINDOPRIL [Concomitant]

REACTIONS (5)
  - BRONCHIECTASIS [None]
  - DIZZINESS [None]
  - HYPOVENTILATION [None]
  - NAUSEA [None]
  - PALPITATIONS [None]
